FAERS Safety Report 5696302-1 (Version None)
Quarter: 2008Q2

REPORT INFORMATION
  Report Type: 
  Country: None (occurrence: None)
  Receive Date: 20080407
  Receipt Date: 20080326
  Transmission Date: 20081010
  Serious: Yes (Hospitalization, Disabling)
  Sender: FDA-Public Use
  Company Number: FR-AMGEN-US263519

PATIENT
  Sex: Female
  Weight: 53 kg

DRUGS (8)
  1. ENBREL [Suspect]
     Indication: RHEUMATOID ARTHRITIS
     Route: 058
     Dates: start: 20040614, end: 20070630
  2. METHOTREXATE [Suspect]
     Indication: RHEUMATOID ARTHRITIS
     Dosage: 10 MG TOTAL WEEKLY
     Route: 048
     Dates: start: 20051201, end: 20060901
  3. HUMIRA [Suspect]
     Indication: RHEUMATOID ARTHRITIS
     Dosage: 40 MG BY INJECTION
     Route: 058
     Dates: start: 20051015, end: 20051224
  4. ESTROGEL [Suspect]
     Indication: MENOPAUSE
     Dosage: UNKNOWN
     Route: 062
     Dates: start: 19940101, end: 20070601
  5. DI-ANTALVIC [Concomitant]
     Indication: RHEUMATOID ARTHRITIS
     Dosage: 6 CAPSULES TOTAL DAILY
     Route: 048
     Dates: start: 19920101
  6. VOLTAREN [Concomitant]
     Indication: RHEUMATOID ARTHRITIS
     Route: 048
     Dates: start: 19920101
  7. CORTANCYL [Concomitant]
     Indication: RHEUMATOID ARTHRITIS
     Route: 048
     Dates: start: 19960101
  8. OMEPRAZOLE [Concomitant]
     Indication: RHEUMATOID ARTHRITIS
     Route: 048
     Dates: start: 19960101

REACTIONS (7)
  - ALOPECIA [None]
  - BREAST CANCER [None]
  - CHONDROCALCINOSIS [None]
  - CONDITION AGGRAVATED [None]
  - DISEASE PROGRESSION [None]
  - DRUG EFFECT DECREASED [None]
  - RHEUMATOID ARTHRITIS [None]
